FAERS Safety Report 5676577-5 (Version None)
Quarter: 2008Q1

REPORT INFORMATION
  Report Type: 
  Country: None (occurrence: None)
  Receive Date: 20080318
  Receipt Date: 20080310
  Transmission Date: 20080703
  Serious: Yes (Other)
  Sender: FDA-Public Use
  Company Number: 2007SP004989

PATIENT
  Age: 49 Year
  Sex: Male

DRUGS (6)
  1. NOXAFIL [Suspect]
     Indication: SCEDOSPORIUM INFECTION
     Dosage: UNK; PO
     Route: 048
     Dates: start: 20061127, end: 20070226
  2. TACROLIMUS [Concomitant]
  3. CELLCEPT [Concomitant]
  4. LAMIVUDINE [Concomitant]
  5. PREDNISONE TAB [Concomitant]
  6. H-BIG [Concomitant]

REACTIONS (6)
  - ALANINE AMINOTRANSFERASE INCREASED [None]
  - ASPARTATE AMINOTRANSFERASE INCREASED [None]
  - BLOOD ALKALINE PHOSPHATASE INCREASED [None]
  - GAMMA-GLUTAMYLTRANSFERASE INCREASED [None]
  - HEPATOTOXICITY [None]
  - LUNG ABSCESS [None]
